FAERS Safety Report 11588043 (Version 2)
Quarter: 2015Q4

REPORT INFORMATION
  Report Type: Report from Study
  Country: US (occurrence: US)
  Receive Date: 20151002
  Receipt Date: 20151102
  Transmission Date: 20160304
  Serious: No
  Sender: FDA-Public Use
  Company Number: US-AMGEN-USASP2015099815

PATIENT
  Age: 52 Year
  Sex: Female

DRUGS (1)
  1. ENBREL [Suspect]
     Active Substance: ETANERCEPT
     Indication: RHEUMATOID ARTHRITIS
     Dosage: 50 MG, QWK
     Route: 065
     Dates: start: 20150401

REACTIONS (10)
  - Grip strength decreased [Unknown]
  - Fatigue [Unknown]
  - Therapeutic response decreased [Unknown]
  - Pain in extremity [Unknown]
  - Peripheral swelling [Unknown]
  - Fibromyalgia [Unknown]
  - Sleep disorder [Unknown]
  - General symptom [Unknown]
  - Muscle tightness [Unknown]
  - Device issue [Unknown]

NARRATIVE: CASE EVENT DATE: 201508
